FAERS Safety Report 11311660 (Version 1)
Quarter: 2015Q3

REPORT INFORMATION
  Report Type: Spontaneous
  Country: RU (occurrence: RU)
  Receive Date: 20150727
  Receipt Date: 20150727
  Transmission Date: 20151125
  Serious: Yes (Other)
  Sender: FDA-Public Use
  Company Number: RU-JNJFOC-20150620593

PATIENT
  Age: 52 Year
  Sex: Female

DRUGS (4)
  1. ORTHO EVRA [Suspect]
     Active Substance: ETHINYL ESTRADIOL\NORELGESTROMIN
     Indication: ENDOMETRIOSIS
     Route: 062
     Dates: start: 20150617, end: 20150617
  2. PANTHENOL [Concomitant]
     Active Substance: PANTHENOL
     Route: 065
  3. AERIUS [Concomitant]
     Active Substance: DESLORATADINE
     Route: 065
  4. SUPRASTIN [Concomitant]
     Active Substance: CHLOROPYRAMINE HYDROCHLORIDE
     Route: 065

REACTIONS (6)
  - Dermatitis contact [Not Recovered/Not Resolved]
  - Toxicity to various agents [Not Recovered/Not Resolved]
  - Swelling face [Not Recovered/Not Resolved]
  - Eye irritation [Not Recovered/Not Resolved]
  - Angioedema [Not Recovered/Not Resolved]
  - Off label use [Not Recovered/Not Resolved]

NARRATIVE: CASE EVENT DATE: 20150617
